FAERS Safety Report 23281832 (Version 2)
Quarter: 2023Q4

REPORT INFORMATION
  Report Type: Spontaneous
  Country: US (occurrence: US)
  Receive Date: 20231211
  Receipt Date: 20231222
  Transmission Date: 20240110
  Serious: Yes (Hospitalization, Other)
  Sender: FDA-Public Use
  Company Number: US-MYLANLABS-2023M1129371

PATIENT
  Age: 71 Year
  Sex: Male
  Weight: 112.2 kg

DRUGS (9)
  1. PREDNISONE [Suspect]
     Active Substance: PREDNISONE
     Indication: Myasthenia gravis
     Dosage: 10 MILLIGRAM, QD
     Route: 065
  2. PREDNISONE [Suspect]
     Active Substance: PREDNISONE
     Indication: Ophthalmoplegia
     Dosage: 60 MILLIGRAM, QD
     Route: 065
  3. PREDNISONE [Suspect]
     Active Substance: PREDNISONE
     Dosage: UNK, GRADUAL TAPER
     Route: 065
     Dates: start: 202002, end: 202207
  4. MYCOPHENOLATE MOFETIL [Suspect]
     Active Substance: MYCOPHENOLATE MOFETIL
     Indication: Myasthenia gravis
     Dosage: 1000 MILLIGRAM, BID
     Route: 065
     Dates: start: 202002
  5. MYCOPHENOLATE MOFETIL [Suspect]
     Active Substance: MYCOPHENOLATE MOFETIL
     Indication: Ophthalmoplegia
     Dosage: 500 MILLIGRAM, BID
     Route: 065
  6. HUMAN IMMUNOGLOBULIN G [Suspect]
     Active Substance: HUMAN IMMUNOGLOBULIN G
     Indication: Myasthenia gravis
     Dosage: 1 GRAM PER KILOGRAM, Q2W
     Route: 042
  7. HUMAN IMMUNOGLOBULIN G [Suspect]
     Active Substance: HUMAN IMMUNOGLOBULIN G
     Indication: Ophthalmoplegia
  8. MESTINON [Concomitant]
     Active Substance: PYRIDOSTIGMINE BROMIDE
     Indication: Myasthenia gravis
     Dosage: 60 MILLIGRAM
     Route: 065
  9. MESTINON [Concomitant]
     Active Substance: PYRIDOSTIGMINE BROMIDE
     Indication: Ophthalmoplegia
     Dosage: 60 MILLIGRAM, TID (TID PRN)
     Route: 065
     Dates: start: 202002

REACTIONS (2)
  - Drug ineffective [Unknown]
  - Off label use [Unknown]
